FAERS Safety Report 20959691 (Version 2)
Quarter: 2022Q2

REPORT INFORMATION
  Report Type: Spontaneous
  Country: JP (occurrence: JP)
  Receive Date: 20220614
  Receipt Date: 20220629
  Transmission Date: 20220720
  Serious: Yes (Other)
  Sender: FDA-Public Use
  Company Number: JP-AMGEN-JPNSP2022081223

PATIENT
  Age: 84 Year
  Sex: Female

DRUGS (4)
  1. EVENITY [Suspect]
     Active Substance: ROMOSOZUMAB-AQQG
     Indication: Product used for unknown indication
     Dosage: 210 MILLIGRAM
     Route: 058
     Dates: start: 202204, end: 2022
  2. LOXOPROFEN SODIUM [Concomitant]
     Active Substance: LOXOPROFEN SODIUM
     Dosage: UNK
  3. REBAMIPIDE [Concomitant]
     Active Substance: REBAMIPIDE
     Dosage: UNK
  4. KETOPROFEN [Concomitant]
     Active Substance: KETOPROFEN
     Dosage: UNK (TAPE)

REACTIONS (3)
  - Pelvic fracture [Unknown]
  - Gait inability [Unknown]
  - Constipation [Unknown]

NARRATIVE: CASE EVENT DATE: 20220427
